FAERS Safety Report 8682687 (Version 3)
Quarter: 2013Q2

REPORT INFORMATION
  Report Type: Report from Study
  Country: JP (occurrence: JP)
  Receive Date: 20120725
  Receipt Date: 20130514
  Transmission Date: 20140414
  Serious: Yes (Other)
  Sender: FDA-Public Use
  Company Number: JP-VERTEX PHARMACEUTICALS INC.-AE-2012-010714

PATIENT
  Age: 62 Year
  Sex: Male

DRUGS (10)
  1. VX-950 (TELAPREVIR) [Suspect]
     Indication: CHRONIC HEPATITIS C
     Dosage: 2250 MG, QD
     Route: 048
     Dates: start: 20120119, end: 20120412
  2. PEGINTRON [Suspect]
     Indication: CHRONIC HEPATITIS C
     Dosage: 0.7 ?G/KG, QW
     Route: 058
     Dates: start: 20120119, end: 20120202
  3. PEGINTRON [Suspect]
     Dosage: 0.35 ?G/KG, QW
     Route: 058
     Dates: start: 20120203, end: 20120203
  4. PEGINTRON [Suspect]
     Dosage: 0.56 ?G/KG, QW
     Route: 058
     Dates: start: 20120217, end: 20120629
  5. REBETOL [Suspect]
     Indication: CHRONIC HEPATITIS C
     Dosage: 600 MG, QD
     Route: 048
     Dates: start: 20120119, end: 20120202
  6. REBETOL [Suspect]
     Dosage: 200 MG, QD
     Route: 048
     Dates: start: 20120203, end: 20120216
  7. REBETOL [Suspect]
     Dosage: 400 MG, QD
     Route: 048
     Dates: start: 20120217, end: 20120302
  8. REBETOL [Suspect]
     Dosage: 200 MG, QD
     Route: 048
     Dates: start: 20120303, end: 20120628
  9. JANUVIA [Concomitant]
     Dosage: 50 MG, QD
     Route: 048
  10. LUMIGAN [Concomitant]
     Dosage: UNK, PRN
     Route: 031

REACTIONS (1)
  - Retinal haemorrhage [Recovered/Resolved]
